FAERS Safety Report 5008177-4 (Version None)
Quarter: 2006Q2

REPORT INFORMATION
  Report Type: 
  Country: None (occurrence: None)
  Receive Date: 20060404
  Receipt Date: 20051218
  Transmission Date: 20061013
  Serious: Yes (Hospitalization, Other)
  Sender: FDA-Public Use
  Company Number: 2005170238

PATIENT
  Age: 44 Year
  Sex: Female
  Weight: 83.4619 kg

DRUGS (2)
  1. GEODON [Suspect]
     Indication: BIPOLAR DISORDER
     Dosage: ORAL
     Route: 048
     Dates: start: 20051201, end: 20051201
  2. LITHIUM (LITHIUM) [Concomitant]

REACTIONS (2)
  - HYPERSENSITIVITY [None]
  - NASAL CONGESTION [None]
